FAERS Safety Report 10045559 (Version 1)
Quarter: 2014Q1

REPORT INFORMATION
  Report Type: Spontaneous
  Country: FR (occurrence: FR)
  Receive Date: 20140328
  Receipt Date: 20140328
  Transmission Date: 20141002
  Serious: Yes (Other)
  Sender: FDA-Public Use
  Company Number: FR-MYLANLABS-2014S1006164

PATIENT
  Age: 87 Year
  Sex: Male
  Weight: 67.5 kg

DRUGS (1)
  1. FENTANYL [Suspect]
     Indication: ANALGESIC THERAPY
     Route: 042
     Dates: start: 20131211, end: 20131211

REACTIONS (3)
  - Accidental overdose [Recovered/Resolved]
  - Incorrect dose administered [Recovered/Resolved]
  - Mechanical ventilation [Recovered/Resolved]
